FAERS Safety Report 10094298 (Version 2)
Quarter: 2014Q2

REPORT INFORMATION
  Report Type: Spontaneous
  Country: US (occurrence: US)
  Receive Date: 20140422
  Receipt Date: 20140424
  Transmission Date: 20141212
  Serious: Yes (Other)
  Sender: FDA-Public Use
  Company Number: US-DRREDDYS-USA/USA/14/0039785

PATIENT
  Age: 78 Year
  Sex: Male
  Weight: 80.73 kg

DRUGS (5)
  1. CETIRIZINE 10 MG [Suspect]
     Indication: SINUSITIS
     Route: 048
     Dates: start: 20140414
  2. CETIRIZINE 10 MG [Suspect]
     Indication: HYPERSENSITIVITY
  3. METOPROLOL SUCCINATE [Concomitant]
     Indication: PRODUCT USED FOR UNKNOWN INDICATION
     Route: 065
  4. LISINOPRIL [Concomitant]
     Indication: PRODUCT USED FOR UNKNOWN INDICATION
     Route: 065
  5. VYTORIN [Concomitant]
     Indication: PRODUCT USED FOR UNKNOWN INDICATION
     Route: 065

REACTIONS (1)
  - Haematochezia [Recovering/Resolving]
